FAERS Safety Report 5884764-6 (Version None)
Quarter: 2008Q3

REPORT INFORMATION
  Report Type: 
  Country: None (occurrence: None)
  Receive Date: 20080916
  Receipt Date: 20080911
  Transmission Date: 20090109
  Serious: Yes (Life-Threatening, Hospitalization)
  Sender: FDA-Public Use
  Company Number: ZA-AVENTIS-200817888GDDC

PATIENT
  Age: 65 Year
  Sex: Female

DRUGS (8)
  1. TAXOTERE [Suspect]
     Route: 042
     Dates: start: 20080507, end: 20080805
  2. CISPLATIN [Suspect]
     Route: 042
     Dates: start: 20080507, end: 20080805
  3. ONICIT [Concomitant]
     Route: 042
     Dates: start: 20080507, end: 20080805
  4. DECASONE                           /00016001/ [Concomitant]
     Route: 042
     Dates: start: 20080507, end: 20080805
  5. PULMISON [Concomitant]
     Route: 048
     Dates: start: 20080507, end: 20080805
  6. LANSOPRAZOL [Concomitant]
     Route: 048
     Dates: start: 20080507, end: 20080805
  7. CLOPAMON [Concomitant]
     Route: 048
     Dates: start: 20080508, end: 20080608
  8. SODIUM CHLORIDE [Concomitant]
     Route: 042
     Dates: start: 20080507, end: 20080805

REACTIONS (5)
  - ANAEMIA [None]
  - COUGH [None]
  - DYSPNOEA [None]
  - HAEMOGLOBIN DECREASED [None]
  - PNEUMOTHORAX [None]
